FAERS Safety Report 18447356 (Version 1)
Quarter: 2020Q4

REPORT INFORMATION
  Report Type: Spontaneous
  Country: US (occurrence: US)
  Receive Date: 20201101
  Receipt Date: 20201101
  Transmission Date: 20210114
  Serious: Yes (Other)
  Sender: FDA-Public Use
  Company Number: US-NAPPMUNDI-USA-2020-0154493

PATIENT

DRUGS (1)
  1. OXYCONTIN [Suspect]
     Active Substance: OXYCODONE HYDROCHLORIDE
     Indication: PRODUCT USED FOR UNKNOWN INDICATION
     Dosage: UNK
     Route: 048
     Dates: end: 201903

REACTIONS (6)
  - Amnesia [Unknown]
  - Unevaluable event [Unknown]
  - Sleep disorder [Unknown]
  - Drug dependence [Recovered/Resolved]
  - Depression [Unknown]
  - Disturbance in attention [Unknown]
